FAERS Safety Report 17507808 (Version 1)
Quarter: 2020Q1

REPORT INFORMATION
  Report Type: Spontaneous
  Country: US (occurrence: US)
  Receive Date: 20200225
  Receipt Date: 20200225
  Transmission Date: 20200409
  Serious: Yes (Other)
  Sender: FDA-Public Use
  Company Number: None

PATIENT
  Age: 55 Year
  Sex: Male
  Weight: 104 kg

DRUGS (1)
  1. BUPIVACAINE/DEXTROSE (BUPIVACAINE HCL 0.75%/DEXTROSE 8.25% INJ) [Suspect]
     Active Substance: BUPIVACAINE\DEXTROSE
     Indication: SURGERY
     Dates: start: 20200203, end: 20200203

REACTIONS (2)
  - Drug ineffective [None]
  - Anaesthetic complication [None]

NARRATIVE: CASE EVENT DATE: 20200203
